FAERS Safety Report 5608252-7 (Version None)
Quarter: 2008Q1

REPORT INFORMATION
  Report Type: 
  Country: None (occurrence: None)
  Receive Date: 20080125
  Receipt Date: 20080111
  Transmission Date: 20080703
  Serious: Yes (Hospitalization)
  Sender: FDA-Public Use
  Company Number: 2008VX000138

PATIENT
  Age: 75 Year
  Sex: Male

DRUGS (4)
  1. MESTINON [Suspect]
     Indication: MYASTHENIA GRAVIS
     Dosage: 60 MG; TID; PO; 30 MG; TID; PO
     Route: 048
     Dates: start: 20050701, end: 20071109
  2. MESTINON [Suspect]
     Indication: MYASTHENIA GRAVIS
     Dosage: 60 MG; TID; PO; 30 MG; TID; PO
     Route: 048
     Dates: start: 20071115
  3. INDAPAMIDE [Concomitant]
  4. KARDEGIC [Concomitant]

REACTIONS (2)
  - DRUG INEFFECTIVE [None]
  - PRINZMETAL ANGINA [None]
